FAERS Safety Report 25513252 (Version 1)
Quarter: 2025Q3

REPORT INFORMATION
  Report Type: Spontaneous
  Country: US (occurrence: US)
  Receive Date: 20250703
  Receipt Date: 20250703
  Transmission Date: 20251020
  Serious: No
  Sender: RADIUS PHARM
  Company Number: US-RADIUS HEALTH INC.-2024US008559

PATIENT
  Age: 71 Year

DRUGS (1)
  1. TYMLOS [Suspect]
     Active Substance: ABALOPARATIDE
     Indication: Product used for unknown indication
     Route: 058
     Dates: start: 20241007, end: 20241012

REACTIONS (4)
  - Injection site haemorrhage [Unknown]
  - Intentional dose omission [Unknown]
  - Pain in jaw [Not Recovered/Not Resolved]
  - Injection site haematoma [Unknown]

NARRATIVE: CASE EVENT DATE: 20241012
